FAERS Safety Report 17024598 (Version 1)
Quarter: 2019Q4

REPORT INFORMATION
  Report Type: Report from Study
  Country: IT (occurrence: IT)
  Receive Date: 20191113
  Receipt Date: 20191113
  Transmission Date: 20200122
  Serious: Yes (Hospitalization, Other)
  Sender: FDA-Public Use
  Company Number: IT-BRISTOL-MYERS SQUIBB COMPANY-BMS-2019-105414

PATIENT
  Age: 80 Year
  Sex: Female

DRUGS (1)
  1. WARFARIN SODIUM. [Suspect]
     Active Substance: WARFARIN SODIUM
     Indication: DEEP VEIN THROMBOSIS
     Dosage: 1 DOSAGE FORM, QD
     Route: 048
     Dates: start: 20000101

REACTIONS (5)
  - Deep vein thrombosis [Recovering/Resolving]
  - Drug ineffective [Recovering/Resolving]
  - Swelling [Recovering/Resolving]
  - Contusion [Recovering/Resolving]
  - Pyrexia [Recovering/Resolving]

NARRATIVE: CASE EVENT DATE: 20190907
